FAERS Safety Report 17504608 (Version 2)
Quarter: 2020Q1

REPORT INFORMATION
  Report Type: Report from Study
  Country: US (occurrence: US)
  Receive Date: 20200305
  Receipt Date: 20200323
  Transmission Date: 20200409
  Serious: No
  Sender: FDA-Public Use
  Company Number: US-SA-2020SA056690

PATIENT
  Age: 37 Year
  Sex: Male

DRUGS (1)
  1. DUPILUMAB [Suspect]
     Active Substance: DUPILUMAB
     Indication: NASAL POLYPS
     Dosage: 300 MG, QOW
     Route: 058
     Dates: start: 20200217

REACTIONS (7)
  - Injection site exfoliation [Unknown]
  - Injection site scab [Unknown]
  - Injection site swelling [Unknown]
  - Injection site pruritus [Unknown]
  - Injection site vesicles [Unknown]
  - Drug ineffective [Unknown]
  - Injection site erythema [Unknown]

NARRATIVE: CASE EVENT DATE: 2020
